FAERS Safety Report 23089663 (Version 1)
Quarter: 2023Q4

REPORT INFORMATION
  Report Type: Spontaneous
  Country: GB (occurrence: GB)
  Receive Date: 20231020
  Receipt Date: 20231020
  Transmission Date: 20240110
  Serious: Yes (Disabling)
  Sender: FDA-Public Use
  Company Number: None

PATIENT

DRUGS (7)
  1. MIRTAZAPINE [Suspect]
     Active Substance: MIRTAZAPINE
     Indication: Product used for unknown indication
     Dosage: 30 MILLIGRAM, QD
     Route: 065
     Dates: start: 20230418
  2. ATORVASTATIN [Concomitant]
     Active Substance: ATORVASTATIN
     Dosage: 1 DOSAGE FORM, QD
     Route: 065
     Dates: start: 20230418
  3. BETAHISTINE [Concomitant]
     Active Substance: BETAHISTINE
     Dosage: 1 DOSAGE FORM, TID
     Route: 065
     Dates: start: 20230418
  4. CLOPIDOGREL [Concomitant]
     Active Substance: CLOPIDOGREL BISULFATE
     Dosage: 1 DOSAGE FORM, QD
     Route: 065
     Dates: start: 20230418
  5. FINASTERIDE [Concomitant]
     Active Substance: FINASTERIDE
     Dosage: 1 DOSAGE FORM, QD
     Route: 065
     Dates: start: 20230418
  6. TRAMADOL HYDROCHLORIDE [Concomitant]
     Active Substance: TRAMADOL HYDROCHLORIDE
     Dosage: 100 MILLIGRAM, BID, (TRAMADOL MR 12 HOURLY)
     Route: 065
     Dates: start: 20230418, end: 20231003
  7. MORPHINE SULFATE [Concomitant]
     Active Substance: MORPHINE SULFATE
     Dosage: 5 MILLIGRAM, QID
     Route: 065
     Dates: start: 20231003

REACTIONS (1)
  - Prostatic pain [Recovered/Resolved]

NARRATIVE: CASE EVENT DATE: 20231004
